FAERS Safety Report 9350967 (Version 2)
Quarter: 2013Q3

REPORT INFORMATION
  Report Type: Spontaneous
  Country: US (occurrence: US)
  Receive Date: 20130617
  Receipt Date: 20130802
  Transmission Date: 20140515
  Serious: No
  Sender: FDA-Public Use
  Company Number: US-PFIZER INC-2013179783

PATIENT
  Age: 90 Year
  Sex: Female

DRUGS (2)
  1. CELEBREX [Suspect]
     Indication: MUSCULOSKELETAL DISCOMFORT
     Dosage: UNK
  2. CELEBREX [Suspect]
     Indication: GROIN PAIN

REACTIONS (5)
  - Expired drug administered [Unknown]
  - Drug ineffective [Unknown]
  - Arthritis [Unknown]
  - Malaise [Unknown]
  - Accident [Unknown]
